FAERS Safety Report 8786421 (Version 1)
Quarter: 2012Q4

REPORT INFORMATION
  Report Type: 
  Country: US (occurrence: US)
  Receive Date: 20120914
  Receipt Date: 20120914
  Transmission Date: 20130627
  Serious: Yes (Death)
  Sender: FDA-Public Use
  Company Number: US-CELGENEUS-163-21880-12091121

PATIENT
  Age: 61 Year
  Sex: Female

DRUGS (4)
  1. REVLIMID [Suspect]
     Indication: MULTIPLE MYELOMA
     Dosage: 25 Milligram
     Route: 048
     Dates: start: 200804
  2. REVLIMID [Suspect]
     Dosage: 15 Milligram
     Route: 048
     Dates: start: 200910
  3. REVLIMID [Suspect]
     Dosage: 25 Milligram
     Route: 048
     Dates: start: 201003
  4. REVLIMID [Suspect]
     Dosage: 10 Milligram
     Route: 048
     Dates: start: 201108

REACTIONS (1)
  - Plasma cell myeloma [Fatal]
